FAERS Safety Report 11319131 (Version 4)
Quarter: 2015Q4

REPORT INFORMATION
  Report Type: Spontaneous
  Country: US (occurrence: US)
  Receive Date: 20150729
  Receipt Date: 20151014
  Transmission Date: 20160304
  Serious: No
  Sender: FDA-Public Use
  Company Number: US-ACTELION PHARMACEUTICALS US, INC.-A-US2015-117315

PATIENT
  Age: 69 Year
  Sex: Female

DRUGS (5)
  1. WARFARIN [Concomitant]
     Active Substance: WARFARIN
  2. ALPRAZOLAM. [Concomitant]
     Active Substance: ALPRAZOLAM
  3. OXYCODONE [Concomitant]
     Active Substance: OXYCODONE
  4. LORAZEPAM. [Concomitant]
     Active Substance: LORAZEPAM
  5. OPSUMIT [Suspect]
     Active Substance: MACITENTAN
     Indication: PULMONARY HYPERTENSION
     Dosage: 10 MG, QD
     Route: 048
     Dates: start: 20150417

REACTIONS (18)
  - Pain in extremity [Not Recovered/Not Resolved]
  - Emotional distress [Unknown]
  - Dyspnoea [Unknown]
  - Visual impairment [Unknown]
  - Crying [Unknown]
  - Chest discomfort [Unknown]
  - Dizziness [Unknown]
  - Depressed mood [Unknown]
  - Gait disturbance [Not Recovered/Not Resolved]
  - Insomnia [Unknown]
  - Vein disorder [Unknown]
  - Cyanosis [Unknown]
  - Rash macular [Unknown]
  - Drug dose omission [Unknown]
  - Peripheral swelling [Not Recovered/Not Resolved]
  - Cough [Unknown]
  - Asthenia [Unknown]
  - No therapeutic response [Unknown]
